FAERS Safety Report 14102200 (Version 1)
Quarter: 2017Q4

REPORT INFORMATION
  Report Type: Spontaneous
  Country: DE (occurrence: DE)
  Receive Date: 20171018
  Receipt Date: 20171018
  Transmission Date: 20180321
  Serious: Yes (Hospitalization)
  Sender: FDA-Public Use
  Company Number: DE-TORRENT-00007231

PATIENT
  Sex: Female

DRUGS (7)
  1. DOXEPIN [Suspect]
     Active Substance: DOXEPIN
  2. VENLAFAXINE [Concomitant]
     Active Substance: VENLAFAXINE HYDROCHLORIDE
  3. RAMIPRIL. [Concomitant]
     Active Substance: RAMIPRIL
  4. SERTRALINE [Suspect]
     Active Substance: SERTRALINE HYDROCHLORIDE
  5. MELPERONE [Concomitant]
     Active Substance: MELPERONE
  6. BUPROPION. [Suspect]
     Active Substance: BUPROPION
  7. LITHIUM. [Concomitant]
     Active Substance: LITHIUM

REACTIONS (2)
  - Sleep-related eating disorder [Recovering/Resolving]
  - Condition aggravated [Recovering/Resolving]
